FAERS Safety Report 5497812-2 (Version None)
Quarter: 2007Q4

REPORT INFORMATION
  Report Type: 
  Country: None (occurrence: None)
  Receive Date: 20071025
  Receipt Date: 20070330
  Transmission Date: 20080405
  Serious: No
  Sender: FDA-Public Use
  Company Number: A0641909A

PATIENT
  Age: 49 Year
  Sex: Female

DRUGS (5)
  1. ADVAIR DISKUS 100/50 [Suspect]
     Indication: ASTHMA
     Dosage: 2PUFF TWICE PER DAY
     Route: 055
     Dates: start: 20070302
  2. EFFEXOR [Concomitant]
  3. CONCERTA [Concomitant]
  4. CARDIZEM [Concomitant]
  5. RESTORIL [Concomitant]

REACTIONS (7)
  - BLOOD PRESSURE INCREASED [None]
  - BRONCHOSPASM [None]
  - COUGH [None]
  - DYSGEUSIA [None]
  - HEADACHE [None]
  - OVERDOSE [None]
  - UPPER RESPIRATORY TRACT INFECTION [None]
